FAERS Safety Report 5230380-9 (Version None)
Quarter: 2007Q1

REPORT INFORMATION
  Report Type: 
  Country: None (occurrence: None)
  Receive Date: 20070206
  Receipt Date: 20070126
  Transmission Date: 20070707
  Serious: Yes (Other)
  Sender: FDA-Public Use
  Company Number: IT-PFIZER INC-2007008050

PATIENT
  Age: 64 Year
  Sex: Male

DRUGS (3)
  1. LYRICA [Suspect]
     Indication: NEURALGIA
     Route: 048
     Dates: start: 20061212, end: 20061201
  2. DURAGESIC-100 [Concomitant]
  3. NEURONTIN [Concomitant]

REACTIONS (4)
  - DYSPHAGIA [None]
  - NEURALGIA [None]
  - PARALYSIS [None]
  - SOMNOLENCE [None]
